FAERS Safety Report 7874506-7 (Version None)
Quarter: 2011Q4

REPORT INFORMATION
  Report Type: 
  Country: None (occurrence: None)
  Receive Date: 20111030
  Receipt Date: 20110520
  Transmission Date: 20120403
  Serious: No
  Sender: FDA-Public Use
  Company Number: US-AMGEN-USASP2011026451

PATIENT
  Age: 64 Year
  Sex: Female

DRUGS (5)
  1. ENBREL [Suspect]
     Indication: RHEUMATOID ARTHRITIS
     Dosage: 50 MG, QWK
     Dates: start: 20050615
  2. ENBREL [Suspect]
     Indication: OSTEOARTHRITIS
  3. ENBREL [Suspect]
     Indication: SJOGREN'S SYNDROME
  4. ENBREL [Suspect]
     Indication: FIBROMYALGIA
  5. ENBREL [Suspect]
     Indication: CERVICAL SPINAL STENOSIS

REACTIONS (8)
  - NASOPHARYNGITIS [None]
  - HYPERSENSITIVITY [None]
  - RHEUMATOID ARTHRITIS [None]
  - MENISCUS LESION [None]
  - SYNOVIAL CYST [None]
  - FOOT FRACTURE [None]
  - ASTHMA [None]
  - NASAL DRYNESS [None]
